FAERS Safety Report 26027649 (Version 4)
Quarter: 2025Q4

REPORT INFORMATION
  Report Type: Spontaneous
  Country: CH (occurrence: CH)
  Receive Date: 20251111
  Receipt Date: 20251223
  Transmission Date: 20260118
  Serious: Yes (Hospitalization)
  Sender: GUERBET
  Company Number: CH-GUERBET / GUERBET AG-CH-20250058

PATIENT
  Age: 72 Year
  Sex: Female
  Weight: 48 kg

DRUGS (1)
  1. ELUCIREM [Suspect]
     Active Substance: GADOPICLENOL
     Indication: Magnetic resonance imaging
     Route: 042
     Dates: start: 20251023, end: 20251023

REACTIONS (8)
  - Hypersensitivity [Recovering/Resolving]
  - Somnolence [Recovering/Resolving]
  - Unresponsive to stimuli [Recovering/Resolving]
  - Cyanosis [Recovering/Resolving]
  - Nausea [Recovering/Resolving]
  - Pustule [Recovering/Resolving]
  - Syncope [Recovering/Resolving]
  - Drug intolerance [Recovering/Resolving]

NARRATIVE: CASE EVENT DATE: 20251023
